FAERS Safety Report 9467591 (Version 4)
Quarter: 2013Q3

REPORT INFORMATION
  Report Type: Report from Study
  Country: JP (occurrence: JP)
  Receive Date: 20130821
  Receipt Date: 20130920
  Transmission Date: 20140515
  Serious: Yes (Hospitalization)
  Sender: FDA-Public Use
  Company Number: JP-SHIRE-CQT4-2013-00005

PATIENT
  Age: 16 Year
  Sex: Male
  Weight: 49.5 kg

DRUGS (18)
  1. VELAGLUCERASE ALFA [Suspect]
     Indication: GAUCHER^S DISEASE
     Dosage: 2828 IU, 1X/2WKS (8 VIALS)
     Route: 041
     Dates: start: 20130607
  2. VELAGLUCERASE ALFA [Suspect]
     Dosage: 2800 IU, 1X/2WKS (7 VIALS)
     Route: 041
     Dates: start: 20120609, end: 20130525
  3. NADIFLOXACIN [Concomitant]
     Indication: ACNE
     Dosage: UNK
     Route: 062
     Dates: start: 201107
  4. LEVOFLOXACIN HYDRATE [Concomitant]
     Indication: INFECTION PROPHYLAXIS
     Dosage: UNK
     Dates: start: 20130107
  5. BROMFENAC SODIUM [Concomitant]
     Indication: PROPHYLAXIS
     Dosage: UNK
     Route: 050
     Dates: start: 20130107
  6. FLUOROMETHOLONE [Concomitant]
     Indication: PROPHYLAXIS
     Dosage: UNK
     Route: 050
     Dates: start: 20130622, end: 20130828
  7. ASCORBIC ACID [Concomitant]
     Indication: ABDOMINAL PAIN
     Dosage: UNK
     Route: 048
     Dates: start: 20130705, end: 20130731
  8. FURSULTIAMINE [Concomitant]
     Indication: ABDOMINAL PAIN
     Dosage: UNK
     Route: 048
     Dates: start: 20130705, end: 20130731
  9. TOCOPHEROL [Concomitant]
     Indication: ABDOMINAL PAIN
     Dosage: UNK
     Route: 048
     Dates: start: 20130705, end: 20130731
  10. L CARTIN [Concomitant]
     Indication: ABDOMINAL PAIN
     Dosage: UNK
     Route: 048
     Dates: start: 20130705, end: 20130731
  11. BIOTIN [Concomitant]
     Indication: ABDOMINAL PAIN
     Dosage: UNK
     Route: 048
     Dates: start: 20130705, end: 20130731
  12. UBIDECARENONE [Concomitant]
     Indication: ABDOMINAL PAIN
     Dosage: UNK
     Route: 048
     Dates: start: 20130705, end: 20130731
  13. LOXOPROFEN SODIUM [Concomitant]
     Indication: ABDOMINAL PAIN
     Dosage: UNK
     Route: 048
     Dates: start: 20130705, end: 20130826
  14. OMEPRAZOLE [Concomitant]
     Indication: ABDOMINAL PAIN
     Dosage: UNK
     Route: 048
     Dates: start: 20130719, end: 20130731
  15. CEFCAPENE PIVOXIL HYDROCHLORIDE [Concomitant]
     Indication: ABDOMINAL PAIN
     Dosage: UNK
     Route: 048
     Dates: start: 20130719, end: 20130731
  16. CALCIUM PANTOTHENATE [Concomitant]
     Indication: ABDOMINAL PAIN
     Dosage: UNK
     Route: 048
     Dates: start: 20130705, end: 20130731
  17. VEEN D [Concomitant]
     Indication: UPPER RESPIRATORY TRACT INFECTION
     Dosage: UNK
     Route: 041
     Dates: start: 20130808, end: 20130808
  18. CEFCAPENE PIVOXIL HYDROCHLORIDE [Concomitant]
     Indication: UPPER RESPIRATORY TRACT INFECTION
     Dosage: UNK
     Route: 048
     Dates: start: 20130808, end: 20130812

REACTIONS (1)
  - Vitreous opacities [Recovered/Resolved]
